FAERS Safety Report 17468687 (Version 1)
Quarter: 2020Q1

REPORT INFORMATION
  Report Type: Spontaneous
  Country: US (occurrence: US)
  Receive Date: 20200217
  Receipt Date: 20200217
  Transmission Date: 20200409
  Serious: No
  Sender: FDA-Public Use
  Company Number: None

PATIENT
  Age: 43 Year
  Sex: Female

DRUGS (1)
  1. SPRYCEL [Suspect]
     Active Substance: DASATINIB
     Dosage: ?          OTHER DOSE:1 TABLET;?
     Route: 048
     Dates: start: 2019

REACTIONS (5)
  - Nausea [None]
  - Therapy cessation [None]
  - Asthma [None]
  - Pneumonia [None]
  - Vomiting [None]

NARRATIVE: CASE EVENT DATE: 20200217
